FAERS Safety Report 6725233-0 (Version None)
Quarter: 2010Q2

REPORT INFORMATION
  Report Type: 
  Country: None (occurrence: None)
  Receive Date: 20100513
  Receipt Date: 20100513
  Transmission Date: 20101027
  Serious: Yes (Hospitalization)
  Sender: FDA-Public Use
  Company Number: None

PATIENT
  Age: 53 Year
  Sex: Male

DRUGS (1)
  1. PHENYTOIN [Suspect]
     Indication: CONVULSION
     Dosage: 500MG QHS
     Dates: start: 20090801, end: 20091201

REACTIONS (3)
  - ANTICONVULSANT DRUG LEVEL ABNORMAL [None]
  - CONVULSION [None]
  - PRODUCT SUBSTITUTION ISSUE [None]
